FAERS Safety Report 17213722 (Version 1)
Quarter: 2019Q4

REPORT INFORMATION
  Report Type: Spontaneous
  Country: RU (occurrence: RU)
  Receive Date: 20191230
  Receipt Date: 20191230
  Transmission Date: 20200122
  Serious: Yes (Other)
  Sender: FDA-Public Use
  Company Number: RU-PFIZER INC-2019555880

PATIENT
  Age: 63 Year
  Sex: Female

DRUGS (1)
  1. INSPRA [Suspect]
     Active Substance: EPLERENONE
     Dosage: UNK
     Dates: start: 2017

REACTIONS (2)
  - Blood potassium increased [Unknown]
  - Chronic kidney disease [Unknown]
